FAERS Safety Report 7230108-7 (Version None)
Quarter: 2011Q1

REPORT INFORMATION
  Report Type: 
  Country: None (occurrence: None)
  Receive Date: 20110118
  Receipt Date: 20110107
  Transmission Date: 20110831
  Serious: Yes (Other)
  Sender: FDA-Public Use
  Company Number: US-US-EMD SERONO, INC.-7027534

PATIENT
  Sex: Female
  Weight: 58 kg

DRUGS (4)
  1. ZANAFLEX [Concomitant]
     Route: 048
  2. ORTHO TRI-CYCLEN LO [Concomitant]
     Indication: CONTRACEPTION
  3. REBIF [Suspect]
     Indication: MULTIPLE SCLEROSIS
     Route: 058
     Dates: start: 20090915
  4. XANAX [Concomitant]
     Route: 048

REACTIONS (4)
  - HEART RATE INCREASED [None]
  - TREMOR [None]
  - BLOOD PRESSURE DECREASED [None]
  - HYPOVOLAEMIA [None]
